FAERS Safety Report 20178490 (Version 1)
Quarter: 2021Q4

REPORT INFORMATION
  Report Type: Spontaneous
  Country: US (occurrence: US)
  Receive Date: 20211214
  Receipt Date: 20211214
  Transmission Date: 20220303
  Serious: No
  Sender: FDA-Public Use
  Company Number: US-ViiV Healthcare Limited-72510

PATIENT

DRUGS (1)
  1. TIVICAY [Suspect]
     Active Substance: DOLUTEGRAVIR SODIUM
     Indication: Prophylaxis against HIV infection
     Dosage: 50 MG, 5 PILLS FOR 5 DAYS

REACTIONS (1)
  - Off label use [Unknown]
